FAERS Safety Report 13738290 (Version 2)
Quarter: 2017Q3

REPORT INFORMATION
  Report Type: Other
  Country: None (occurrence: US)
  Receive Date: 20170710
  Receipt Date: 20170710
  Transmission Date: 20171127
  Serious: Yes (Other)
  Sender: FDA-Public Use
  Company Number: US-GUTHY-RENKER LLC-2023153

PATIENT
  Age: 24 Year
  Sex: Female

DRUGS (4)
  1. PROACTIV PLUS COMPLEXION PERFECTING HYDRATOR [Suspect]
     Active Substance: SALICYLIC ACID
     Route: 061
     Dates: start: 20160129, end: 20160313
  2. PROACTIVPLUS SKIN SMOOTHING EXFOLIATOR [Suspect]
     Active Substance: BENZOYL PEROXIDE
     Indication: ACNE
     Route: 061
     Dates: start: 20160129, end: 20160313
  3. PA PLUS MARK CORRECTING PADS [Suspect]
     Active Substance: GLYCOLIC ACID\SALICYLIC ACID
     Route: 061
     Dates: start: 20160129, end: 20160313
  4. PROACTIV PLUS PORE TARGETING TREATMENT [Suspect]
     Active Substance: BENZOYL PEROXIDE
     Route: 061
     Dates: start: 20160129, end: 20160313

REACTIONS (4)
  - Application site swelling [None]
  - Wrong technique in product usage process [None]
  - Application site reaction [None]
  - Rash macular [Recovering/Resolving]

NARRATIVE: CASE EVENT DATE: 20160129
